FAERS Safety Report 23481658 (Version 1)
Quarter: 2024Q1

REPORT INFORMATION
  Report Type: Spontaneous
  Country: BR (occurrence: BR)
  Receive Date: 20240205
  Receipt Date: 20240205
  Transmission Date: 20240410
  Serious: Yes (Other)
  Sender: FDA-Public Use
  Company Number: BR-002147023-NVSC2024BR024270

PATIENT
  Sex: Female

DRUGS (2)
  1. DIOVAN HCT [Suspect]
     Active Substance: HYDROCHLOROTHIAZIDE\VALSARTAN
     Indication: Blood pressure measurement
     Dosage: 320/25 MG, QD
     Route: 065
     Dates: start: 2004
  2. DIOVAN [Suspect]
     Active Substance: VALSARTAN
     Indication: Blood pressure measurement
     Dosage: 80 MG
     Route: 065

REACTIONS (8)
  - Infarction [Recovered/Resolved]
  - Infarction [Recovered/Resolved]
  - Coronary artery insufficiency [Recovered/Resolved]
  - Neuromyelitis optica spectrum disorder [Not Recovered/Not Resolved]
  - Blindness unilateral [Not Recovered/Not Resolved]
  - Optic nerve injury [Not Recovered/Not Resolved]
  - Emotional disorder [Unknown]
  - Product supply issue [Unknown]

NARRATIVE: CASE EVENT DATE: 20120101
